FAERS Safety Report 9435065 (Version 1)
Quarter: 2013Q3

REPORT INFORMATION
  Report Type: Report from Study
  Country: US (occurrence: US)
  Receive Date: 20130801
  Receipt Date: 20130801
  Transmission Date: 20140515
  Serious: Yes (Hospitalization, Other)
  Sender: FDA-Public Use
  Company Number: US-ABBOTT-13P-163-1059592-00

PATIENT
  Age: 37 Year
  Sex: Female
  Weight: 92.16 kg

DRUGS (5)
  1. HUMIRA [Suspect]
     Indication: CROHN^S DISEASE
     Route: 058
     Dates: start: 20130301, end: 20130412
  2. PROPANOLOL [Concomitant]
     Indication: HYPERTENSION
     Dosage: 120 MG DAILY AT BEDTIME
  3. HYDROCHLOROTHIAZIDE [Concomitant]
     Indication: HYPERTENSION
     Dosage: 25 MG DAILY IN THE MORNING
  4. MEDROGESTONE [Concomitant]
     Indication: CONTRACEPTION
     Dosage: DAILY
  5. ZOLPIDEM [Concomitant]
     Indication: INSOMNIA
     Dosage: 10 MG DAILY AT BEDTIME

REACTIONS (6)
  - Abdominal adhesions [Recovering/Resolving]
  - Abdominal pain [Recovering/Resolving]
  - Joint swelling [Not Recovered/Not Resolved]
  - Frequent bowel movements [Not Recovered/Not Resolved]
  - Nausea [Not Recovered/Not Resolved]
  - Joint stiffness [Not Recovered/Not Resolved]
